FAERS Safety Report 6971505-4 (Version None)
Quarter: 2010Q3

REPORT INFORMATION
  Report Type: 
  Country: None (occurrence: None)
  Receive Date: 20100908
  Receipt Date: 20100830
  Transmission Date: 20110219
  Serious: Yes (Other)
  Sender: FDA-Public Use
  Company Number: BR-PFIZER INC-2010078748

PATIENT
  Age: 51 Year
  Sex: Female
  Weight: 51 kg

DRUGS (3)
  1. CHAMPIX [Suspect]
     Indication: TOBACCO USER
     Dosage: UNK
     Route: 048
     Dates: start: 20100531, end: 20100101
  2. RIVOTRIL [Concomitant]
     Indication: DEPRESSION
     Dosage: 2 MG, 2X/DAY
     Dates: start: 20080101
  3. VENLAFAXINE [Concomitant]
     Indication: DEPRESSION
     Dosage: 75 MG, 1X/DAY
     Dates: start: 20100701

REACTIONS (6)
  - ANXIETY [None]
  - BEDRIDDEN [None]
  - DEPRESSION [None]
  - DISTURBANCE IN ATTENTION [None]
  - DIZZINESS [None]
  - SUICIDAL IDEATION [None]
